FAERS Safety Report 10508195 (Version 1)
Quarter: 2014Q4

REPORT INFORMATION
  Report Type: Spontaneous
  Country: US (occurrence: None)
  Receive Date: 20141008
  Receipt Date: 20141008
  Transmission Date: 20150528
  Serious: Yes (Hospitalization)
  Sender: FDA-Public Use
  Company Number: None

PATIENT
  Age: 62 Year
  Sex: Male
  Weight: 119.5 kg

DRUGS (1)
  1. BENAZEPRIL [Suspect]
     Active Substance: BENAZEPRIL\BENAZEPRIL HYDROCHLORIDE
     Indication: HYPERTENSION
     Dosage: 80 MG, EVERY DAY, PO
     Route: 048
     Dates: start: 20140225, end: 20140801

REACTIONS (2)
  - Angioedema [None]
  - Bronchospasm [None]

NARRATIVE: CASE EVENT DATE: 20140801
